FAERS Safety Report 18311957 (Version 1)
Quarter: 2020Q3

REPORT INFORMATION
  Report Type: Spontaneous
  Country: DE (occurrence: DE)
  Receive Date: 20200925
  Receipt Date: 20200925
  Transmission Date: 20201103
  Serious: Yes (Hospitalization)
  Sender: FDA-Public Use
  Company Number: DE-ACCORD-202683

PATIENT
  Age: 17 Year
  Sex: Female
  Weight: 92 kg

DRUGS (5)
  1. FLUOXETINE [Suspect]
     Active Substance: FLUOXETINE HYDROCHLORIDE
     Route: 048
     Dates: start: 20200607, end: 20200607
  2. IBUPROFEN. [Suspect]
     Active Substance: IBUPROFEN
     Dosage: DAILY DOSE: 2800 MG MILLGRAM(S) EVERY DAYS 7 SEPARATED DOSES,??STRENGTH 400 MG
     Route: 048
     Dates: start: 20200607, end: 20200607
  3. QUETIAPINE/QUETIAPINE FUMARATE [Concomitant]
     Active Substance: QUETIAPINE FUMARATE
     Indication: MAJOR DEPRESSION
     Dosage: STRENGTH 25 MG
     Route: 048
  4. QUETIAPINE. [Suspect]
     Active Substance: QUETIAPINE
     Dosage: STRENGTH: 25 MG, DAILY DOSE: 250 MG MILLGRAM(S) EVERY DAYS 10 SEPARATED DOSES
     Route: 048
     Dates: start: 20200607, end: 20200607
  5. FLUOXETINE [Concomitant]
     Active Substance: FLUOXETINE HYDROCHLORIDE
     Indication: MAJOR DEPRESSION
     Dosage: 30?0?0 MG
     Route: 048

REACTIONS (5)
  - General physical health deterioration [Unknown]
  - Toxicity to various agents [Unknown]
  - Suicidal ideation [Unknown]
  - Intentional overdose [Unknown]
  - Fatigue [Unknown]

NARRATIVE: CASE EVENT DATE: 20200607
